FAERS Safety Report 9843400 (Version 1)
Quarter: 2013Q4

REPORT INFORMATION
  Report Type: Spontaneous
  Country: US (occurrence: None)
  Receive Date: 20131223
  Receipt Date: 20131223
  Transmission Date: 20140711
  Serious: No
  Sender: FDA-Public Use
  Company Number: 218555LEO

PATIENT
  Age: 70 Year
  Sex: Male

DRUGS (1)
  1. PICATO (0.015%) GEL [Suspect]
     Indication: PRECANCEROUS CELLS PRESENT
     Route: 061
     Dates: start: 20120801, end: 20120803

REACTIONS (4)
  - Application site vesicles [None]
  - Application site pruritus [None]
  - Application site rash [None]
  - Off label use [None]
